FAERS Safety Report 9265185 (Version 1)
Quarter: 2013Q2

REPORT INFORMATION
  Report Type: Spontaneous
  Country: ZA (occurrence: ZA)
  Receive Date: 20130501
  Receipt Date: 20130501
  Transmission Date: 20140414
  Serious: Yes (Other)
  Sender: FDA-Public Use
  Company Number: ZA-PFIZER INC-2013132350

PATIENT
  Sex: Male

DRUGS (1)
  1. DEPO-TESTOSTERONE [Suspect]
     Indication: ANDROGEN DEFICIENCY
     Dosage: 4 ML, MONTHLY

REACTIONS (2)
  - Tendon rupture [Not Recovered/Not Resolved]
  - Drug ineffective [Not Recovered/Not Resolved]
